FAERS Safety Report 9919412 (Version 1)
Quarter: 2014Q1

REPORT INFORMATION
  Report Type: Spontaneous
  Country: US (occurrence: US)
  Receive Date: 20140224
  Receipt Date: 20140224
  Transmission Date: 20141002
  Serious: Yes (Hospitalization, Other)
  Sender: FDA-Public Use
  Company Number: US-009507513-1402USA009801

PATIENT
  Age: 67 Year
  Sex: Male

DRUGS (14)
  1. SINEMET [Suspect]
     Indication: PARKINSON^S DISEASE
     Dosage: 1.5 DF, TID
     Route: 048
     Dates: end: 20140218
  2. ELAVIL [Concomitant]
  3. ASPIRIN [Concomitant]
  4. LIPITOR [Concomitant]
  5. LODOSYN [Concomitant]
  6. LOVENOX [Concomitant]
  7. PEPCID [Concomitant]
  8. LEVAQUIN [Concomitant]
  9. METOPROLOL [Concomitant]
  10. MORPHINE [Concomitant]
  11. ZOSYN [Concomitant]
  12. MIRALAX [Concomitant]
  13. ZOLOFT [Concomitant]
  14. ULTRAM [Concomitant]

REACTIONS (4)
  - Adverse event [Unknown]
  - Pneumonia [Not Recovered/Not Resolved]
  - Hypotension [Recovered/Resolved]
  - Dysphagia [Unknown]
